FAERS Safety Report 8177030-X (Version None)
Quarter: 2012Q1

REPORT INFORMATION
  Report Type: 
  Country: None (occurrence: None)
  Receive Date: 20120301
  Receipt Date: 20120222
  Transmission Date: 20120608
  Serious: Yes (Hospitalization, Other)
  Sender: FDA-Public Use
  Company Number: US-PFIZER INC-2012039634

PATIENT
  Age: 25 Year
  Sex: Female

DRUGS (9)
  1. FERROUS SULFATE [Concomitant]
     Dosage: UNK
  2. KAPSOVIT [Concomitant]
     Dosage: UNK
  3. FOLIC ACID [Concomitant]
     Dosage: UNK
  4. LORAZEPAM [Concomitant]
     Indication: ACUTE PSYCHOSIS
     Dosage: 1 DF, UNK
  5. RISPERIDONE [Suspect]
     Indication: ACUTE PSYCHOSIS
     Dosage: 2 MG, 1X/DAY
  6. OLANZAPINE [Suspect]
     Dosage: 5 MG, 2X/DAY
  7. HALOPERIDOL [Suspect]
     Indication: ACUTE PSYCHOSIS
     Dosage: 1 DF, UNK
  8. HALOPERIDOL [Suspect]
     Dosage: 2.5 MG, 1X/DAY
  9. OLANZAPINE [Suspect]
     Indication: ACUTE PSYCHOSIS
     Dosage: 5 MG, 1X/DAY

REACTIONS (5)
  - MATERNAL EXPOSURE DURING PREGNANCY [None]
  - NEUROLEPTIC MALIGNANT SYNDROME [None]
  - ESCHERICHIA TEST POSITIVE [None]
  - MAJOR DEPRESSION [None]
  - STREPTOCOCCUS TEST POSITIVE [None]
